FAERS Safety Report 5600321-0 (Version None)
Quarter: 2007Q4

REPORT INFORMATION
  Report Type: 
  Country: None (occurrence: None)
  Receive Date: 20071227
  Receipt Date: 20061214
  Transmission Date: 20080405
  Serious: Yes (Hospitalization)
  Sender: FDA-Public Use
  Company Number: 2006S1000310

PATIENT
  Age: 57 Year
  Sex: Male
  Weight: 284.4053 kg

DRUGS (11)
  1. SORIATANE [Suspect]
     Indication: PSORIASIS
     Dosage: 25 MG;QD;PO
     Route: 048
     Dates: start: 20050126, end: 20050215
  2. TACROLIMUS VS PLACEBO [Suspect]
     Indication: PSORIASIS
     Dosage: 1 APPLICATION;BID;TOP
     Route: 061
     Dates: start: 20050126, end: 20050219
  3. COLCHICINE [Concomitant]
  4. SYNTHROID [Concomitant]
  5. ASPIRIN [Concomitant]
  6. METOPROLOL TARTRATE [Concomitant]
  7. ALLOPURINOL [Concomitant]
  8. LIPITOR [Concomitant]
  9. INDOMETHACIN [Concomitant]
  10. POTASSIUM CHLORIDE [Concomitant]
  11. LASIX [Concomitant]

REACTIONS (3)
  - CARDIAC ENZYMES INCREASED [None]
  - HYPOXIA [None]
  - INFLUENZA [None]
